FAERS Safety Report 15272152 (Version 2)
Quarter: 2018Q3

REPORT INFORMATION
  Report Type: Spontaneous
  Country: JP (occurrence: JP)
  Receive Date: 20180813
  Receipt Date: 20180827
  Transmission Date: 20181010
  Serious: Yes (Other)
  Sender: FDA-Public Use
  Company Number: JP-BAYER-2018-092932

PATIENT
  Age: 70 Year
  Sex: Male

DRUGS (7)
  1. STIVARGA [Suspect]
     Active Substance: REGORAFENIB
     Indication: COLORECTAL CANCER
     Dosage: 2 DF, QD (2?WEEK TREATMENT FOLLOWED BY A 1?WEEK REST)
     Route: 048
     Dates: start: 20161201
  2. STIVARGA [Suspect]
     Active Substance: REGORAFENIB
     Indication: COLORECTAL CANCER
     Dosage: 2 DF, BID
     Route: 048
  3. STIVARGA [Suspect]
     Active Substance: REGORAFENIB
     Indication: COLORECTAL CANCER
     Dosage: 2 DF, TID
     Route: 048
  4. STIVARGA [Suspect]
     Active Substance: REGORAFENIB
     Indication: COLORECTAL CANCER
     Dosage: 3 DF, BID(2?WEEK TREATMENT FOLLOWED BY A 1?WEEK REST)
     Route: 048
  5. STIVARGA [Suspect]
     Active Substance: REGORAFENIB
     Indication: COLORECTAL CANCER
     Dosage: 3 DF, BID
     Route: 048
  6. STIVARGA [Suspect]
     Active Substance: REGORAFENIB
     Indication: COLORECTAL CANCER
     Dosage: 3 DF, TID
     Route: 048
     Dates: end: 20170401
  7. STIVARGA [Suspect]
     Active Substance: REGORAFENIB
     Indication: COLORECTAL CANCER
     Dosage: 3 DF, UNK
     Route: 048

REACTIONS (9)
  - Blood potassium decreased [Recovered/Resolved]
  - C-reactive protein increased [None]
  - Rash [None]
  - Proteinuria [Recovered/Resolved]
  - Platelet count decreased [Recovering/Resolving]
  - Cancer pain [None]
  - Colon cancer [None]
  - Palmar-plantar erythrodysaesthesia syndrome [Recovered/Resolved]
  - Dysphonia [Recovered/Resolved]

NARRATIVE: CASE EVENT DATE: 20161208
